FAERS Safety Report 15940938 (Version 2)
Quarter: 2019Q1

REPORT INFORMATION
  Report Type: Spontaneous
  Country: US (occurrence: US)
  Receive Date: 20190208
  Receipt Date: 20190214
  Transmission Date: 20190417
  Serious: Yes (Other)
  Sender: FDA-Public Use
  Company Number: US-ASTRAZENECA-2018SF34027

PATIENT
  Sex: Female

DRUGS (19)
  1. OXYBUTYNIN. [Concomitant]
     Active Substance: OXYBUTYNIN CHLORIDE
  2. CEPHALEX [Concomitant]
  3. METOCLOPRAMIDE. [Concomitant]
     Active Substance: METOCLOPRAMIDE
  4. SPIRONOLACTONE. [Concomitant]
     Active Substance: SPIRONOLACTONE
  5. L-THYROXINE [Concomitant]
     Active Substance: LEVOTHYROXINE
  6. FUROSEMIDE. [Concomitant]
     Active Substance: FUROSEMIDE
  7. POTASSIUM CHLORIDE. [Concomitant]
     Active Substance: POTASSIUM CHLORIDE
  8. LOTREL [Concomitant]
     Active Substance: AMLODIPINE BESYLATE\BENAZEPRIL HYDROCHLORIDE
  9. LOVASTATIN. [Concomitant]
     Active Substance: LOVASTATIN
  10. ENABLEX [Concomitant]
     Active Substance: DARIFENACIN HYDROBROMIDE
  11. LIPITOR [Concomitant]
     Active Substance: ATORVASTATIN CALCIUM
  12. ZETIA [Concomitant]
     Active Substance: EZETIMIBE
  13. IBUPROFEN. [Concomitant]
     Active Substance: IBUPROFEN
  14. NEXIUM [Suspect]
     Active Substance: ESOMEPRAZOLE MAGNESIUM
     Route: 048
     Dates: start: 20041110
  15. METOPROLOL. [Concomitant]
     Active Substance: METOPROLOL
  16. ECONAZOLE. [Concomitant]
     Active Substance: ECONAZOLE NITRATE
  17. NEXIUM [Suspect]
     Active Substance: ESOMEPRAZOLE MAGNESIUM
     Route: 048
     Dates: start: 20040510, end: 20161201
  18. HYDROCO/ACETAM [Concomitant]
  19. ZYRTEC [Concomitant]
     Active Substance: CETIRIZINE HYDROCHLORIDE

REACTIONS (3)
  - Gastrooesophageal reflux disease [Unknown]
  - Renal failure [Unknown]
  - Chronic kidney disease [Unknown]
